FAERS Safety Report 23859140 (Version 1)
Quarter: 2024Q2

REPORT INFORMATION
  Report Type: Spontaneous
  Country: US (occurrence: US)
  Receive Date: 20240515
  Receipt Date: 20240515
  Transmission Date: 20240715
  Serious: Yes (Other)
  Sender: FDA-Public Use
  Company Number: US-Nephron Sterile Compounding Center-2157030

PATIENT
  Age: 72 Year
  Sex: Male
  Weight: 81.1 kg

DRUGS (1)
  1. LIDOCAINE\MAGNESIUM SULFATE\MANNITOL\PLASMA-LYTE A\SODIUM BICARBONATE [Suspect]
     Active Substance: LIDOCAINE\MAGNESIUM SULFATE\MANNITOL\PLASMA-LYTE A\SODIUM BICARBONATE
     Indication: Coronary artery bypass
     Dates: start: 20240430

REACTIONS (1)
  - Drug ineffective [Recovered/Resolved]

NARRATIVE: CASE EVENT DATE: 20240430
